FAERS Safety Report 19911866 (Version 1)
Quarter: 2021Q4

REPORT INFORMATION
  Report Type: Other
  Country: HR (occurrence: HR)
  Receive Date: 20211004
  Receipt Date: 20211004
  Transmission Date: 20220303
  Serious: Yes (Other)
  Sender: FDA-Public Use
  Company Number: None

PATIENT
  Age: 63 Year
  Sex: Male

DRUGS (5)
  1. VANCOMYCIN [Suspect]
     Active Substance: VANCOMYCIN
     Indication: Central nervous system infection
     Dosage: UNK
     Route: 065
  2. MEROPENEM [Suspect]
     Active Substance: MEROPENEM
     Indication: Central nervous system infection
     Dosage: UNK
     Route: 065
  3. AMPHOTERICIN B [Suspect]
     Active Substance: AMPHOTERICIN B
     Indication: Central nervous system infection
     Dosage: UNK
     Route: 065
  4. CRESEMBA [Suspect]
     Active Substance: ISAVUCONAZONIUM SULFATE
     Indication: Fungal infection
     Dosage: 200 MILLIGRAM, TID, (3X/DAY) (CONCENTRATE FOR SOLUTION FOR INFUSION)
     Route: 042
  5. CRESEMBA [Suspect]
     Active Substance: ISAVUCONAZONIUM SULFATE
     Dosage: 200 MILLIGRAM, QD, (1X/DAY) (CONCENTRATE FOR SOLUTION FOR INFUSION)
     Route: 042

REACTIONS (6)
  - Central nervous system lesion [Unknown]
  - Dysphagia [Unknown]
  - Ataxia [Unknown]
  - Somnolence [Unknown]
  - Vertigo [Unknown]
  - Pyrexia [Unknown]
